FAERS Safety Report 22635253 (Version 1)
Quarter: 2023Q2

REPORT INFORMATION
  Report Type: Spontaneous
  Country: CO (occurrence: CO)
  Receive Date: 20230623
  Receipt Date: 20230623
  Transmission Date: 20230721
  Serious: Yes (Other)
  Sender: FDA-Public Use
  Company Number: CO-KYOWAKIRIN-2022BKK016422

PATIENT

DRUGS (1)
  1. CRYSVITA [Suspect]
     Active Substance: BUROSUMAB-TWZA
     Indication: Product used for unknown indication
     Dosage: 70 MG, 1X/MONTH (1 MG/KG)
     Route: 058

REACTIONS (7)
  - Parathyroid tumour benign [Unknown]
  - Hypercalcaemia [Not Recovered/Not Resolved]
  - Blood phosphorus decreased [Not Recovered/Not Resolved]
  - Blood alkaline phosphatase increased [Unknown]
  - Musculoskeletal pain [Unknown]
  - Hyperparathyroidism [Not Recovered/Not Resolved]
  - Suspected product quality issue [Unknown]
